FAERS Safety Report 9225652 (Version 1)
Quarter: 2013Q2

REPORT INFORMATION
  Report Type: Spontaneous
  Country: US (occurrence: US)
  Receive Date: 20130411
  Receipt Date: 20130411
  Transmission Date: 20140414
  Serious: Yes (Death)
  Sender: FDA-Public Use
  Company Number: US-GLAXOSMITHKLINE-A1019536A

PATIENT
  Age: 57 Year
  Sex: Female

DRUGS (4)
  1. TYKERB [Suspect]
     Indication: BREAST CANCER
     Dosage: 1250MG PER DAY
     Route: 048
     Dates: start: 20120706, end: 20130303
  2. MORPHINE [Concomitant]
  3. VICODIN [Concomitant]
  4. XELODA [Concomitant]

REACTIONS (1)
  - Death [Fatal]
